FAERS Safety Report 22114146 (Version 1)
Quarter: 2023Q1

REPORT INFORMATION
  Report Type: Spontaneous
  Country: US (occurrence: None)
  Receive Date: 20230317
  Receipt Date: 20230317
  Transmission Date: 20230418
  Serious: No
  Sender: FDA-Public Use
  Company Number: None

PATIENT
  Age: 37 Year
  Sex: Female
  Weight: 50.48 kg

DRUGS (1)
  1. CAPECITABINE [Suspect]
     Active Substance: CAPECITABINE
     Indication: Breast cancer female
     Dosage: 1000-1500MG TWICE DAILY ORAL
     Route: 048

REACTIONS (3)
  - Palmar-plantar erythrodysaesthesia syndrome [None]
  - Myelosuppression [None]
  - Therapy cessation [None]
